FAERS Safety Report 15413058 (Version 2)
Quarter: 2018Q4

REPORT INFORMATION
  Report Type: Spontaneous
  Country: US (occurrence: US)
  Receive Date: 20180921
  Receipt Date: 20181206
  Transmission Date: 20190204
  Serious: Yes (Other)
  Sender: FDA-Public Use
  Company Number: US-UCBSA-2017040976

PATIENT
  Age: 34 Year
  Sex: Female
  Weight: 79.82 kg

DRUGS (1)
  1. KEPPRA [Suspect]
     Active Substance: LEVETIRACETAM
     Indication: SEIZURE
     Dosage: 500 MG, 2X/DAY (BID)

REACTIONS (3)
  - Breast feeding [Unknown]
  - Gestational diabetes [Unknown]
  - Pregnancy [Unknown]

NARRATIVE: CASE EVENT DATE: 20151115
